FAERS Safety Report 9805430 (Version 2)
Quarter: 2014Q1

REPORT INFORMATION
  Report Type: Spontaneous
  Country: US (occurrence: None)
  Receive Date: 20140107
  Receipt Date: 20140219
  Transmission Date: 20141002
  Serious: Yes (Other)
  Sender: FDA-Public Use
  Company Number: 2013P1021597

PATIENT
  Age: 52 Year
  Sex: Female
  Weight: 108.86 kg

DRUGS (6)
  1. MORPHINE [Suspect]
     Indication: PROCEDURAL PAIN
     Route: 042
     Dates: start: 2005
  2. MORPHINE [Suspect]
     Indication: LUNG OPERATION
     Route: 042
     Dates: start: 2005
  3. MORPHINE PATCH [Suspect]
     Indication: ARTHRALGIA
     Route: 062
     Dates: start: 2007
  4. MORPHINE PATCH [Suspect]
     Indication: HIP FRACTURE
     Route: 062
     Dates: start: 2007
  5. UNSPECIFIED BLOOD PRESSURE MEDICINE [Concomitant]
  6. UNSPECIFIED ACROMEDGALY INJECTION [Concomitant]

REACTIONS (5)
  - Hip fracture [None]
  - Feeling abnormal [None]
  - Dizziness [None]
  - Dyspnoea [None]
  - Hypersensitivity [None]
